FAERS Safety Report 10035914 (Version 1)
Quarter: 2014Q1

REPORT INFORMATION
  Report Type: Spontaneous
  Country: RU (occurrence: RU)
  Receive Date: 20140325
  Receipt Date: 20140325
  Transmission Date: 20141002
  Serious: Yes (Hospitalization, Other)
  Sender: FDA-Public Use
  Company Number: RU-B.I. PHARMACEUTICALS,INC./RIDGEFIELD-2014-BI-12684RZ

PATIENT
  Age: 65 Year
  Sex: Female

DRUGS (9)
  1. PRADAXA [Suspect]
     Indication: ATRIAL FIBRILLATION
     Dosage: 300 MG
     Route: 048
     Dates: start: 201304, end: 201403
  2. PRADAXA [Suspect]
     Indication: CEREBROVASCULAR ACCIDENT PROPHYLAXIS
  3. LORISTA/LOSARTAN [Concomitant]
     Indication: HYPERTENSION
     Dosage: 100 MG
     Route: 048
  4. LORISTA/LOSARTAN [Concomitant]
     Indication: DIABETES MELLITUS
  5. VEROSPIRON/SPIRONOLACTONE [Concomitant]
     Indication: HYPERTENSION
     Dosage: 100 MG
     Route: 048
  6. VEROSPIRON/SPIRONOLACTONE [Concomitant]
     Indication: CARDIAC FAILURE CHRONIC
  7. ROSUVASTATIN [Concomitant]
     Indication: MYOCARDIAL ISCHAEMIA
     Dosage: 20 MG
     Route: 065
  8. XARELTO/RIVAROXABAN [Concomitant]
     Indication: ATRIAL FIBRILLATION
     Dosage: 20 MG
     Route: 048
     Dates: start: 201403
  9. XARELTO/RIVAROXABAN [Concomitant]
     Indication: CEREBROVASCULAR ACCIDENT PROPHYLAXIS

REACTIONS (1)
  - Acute coronary syndrome [Recovered/Resolved]
